FAERS Safety Report 11745540 (Version 1)
Quarter: 2015Q4

REPORT INFORMATION
  Report Type: Report from Study
  Country: ES (occurrence: ES)
  Receive Date: 20151117
  Receipt Date: 20151117
  Transmission Date: 20160304
  Serious: Yes (Other)
  Sender: FDA-Public Use
  Company Number: ES-BEH-2015055699

PATIENT
  Sex: Female

DRUGS (2)
  1. C1-INH CONCENTRATE [Suspect]
     Active Substance: CONESTAT ALFA
     Indication: HEREDITARY ANGIOEDEMA
     Dosage: EVERY 3 - 7 DAYS FOR INTERMITTENT LONG TERM PROPHYLAXIS
  2. C1-INH CONCENTRATE [Suspect]
     Active Substance: CONESTAT ALFA
     Indication: PROPHYLAXIS
     Dosage: EVERY 3 - 7 DAYS FOR INTERMITTENT LONG TERM PROPHYLAXIS

REACTIONS (2)
  - Abortion spontaneous [Unknown]
  - Exposure during pregnancy [Unknown]
